FAERS Safety Report 8348081 (Version 3)
Quarter: 2012Q4

REPORT INFORMATION
  Report Type: 
  Country: JP (occurrence: JP)
  Receive Date: 20120123
  Receipt Date: 20121214
  Transmission Date: 20130627
  Serious: Yes (Death, Life-Threatening, Hospitalization, Other)
  Sender: FDA-Public Use
  Company Number: JP-GENZYME-THYM-1003078

PATIENT

DRUGS (44)
  1. THYMOGLOBULIN [Suspect]
     Indication: BONE MARROW CONDITIONING REGIMEN
     Dosage: 112.5 mg, qd
     Route: 065
     Dates: start: 20090529, end: 20090601
  2. CEFAZOLIN SODIUM [Concomitant]
     Indication: INFECTION PROPHYLAXIS
     Dosage: UNK
     Route: 065
     Dates: start: 20090520, end: 20090529
  3. DALTEPARIN SODIUM [Concomitant]
     Indication: PROPHYLAXIS
     Dosage: UNK
     Route: 065
     Dates: start: 20090525, end: 20090701
  4. FLUDARABINE PHOSPHATE [Concomitant]
     Indication: PREMEDICATION
     Dosage: UNK
     Route: 065
     Dates: start: 20090526, end: 20090530
  5. METHYLPREDNISOLONE SODIUM SUCCINATE [Concomitant]
     Indication: SUPPORTIVE CARE
     Dosage: UNK
     Route: 065
     Dates: start: 20090531, end: 20090601
  6. MELPHALAN [Concomitant]
     Indication: PREMEDICATION
     Dosage: UNK
     Route: 065
     Dates: start: 20090531, end: 20090601
  7. FREEZED DRIED POLYETHYLENE GLYCOL TREATED HUMAN NORMAL IMMUNOGLOBULIN [Concomitant]
     Indication: INFECTION PROPHYLAXIS
     Dosage: UNK
     Route: 065
     Dates: start: 20090528, end: 20091230
  8. TACROLIMUS [Concomitant]
     Indication: PROPHYLAXIS AGAINST GRAFT VERSUS HOST DISEASE
     Dosage: UNK
     Route: 065
     Dates: start: 20090602, end: 20091218
  9. METHOTREXATE [Concomitant]
     Indication: PROPHYLAXIS AGAINST GRAFT VERSUS HOST DISEASE
     Dosage: UNK
     Route: 065
     Dates: start: 20090604, end: 20090614
  10. HYDROCORTISONE 21-(SODIUM SUCCINATE) [Concomitant]
     Indication: PREMEDICATION
     Dosage: UNK
     Route: 065
     Dates: start: 20090603, end: 20090603
  11. HYDROCORTISONE 21-(SODIUM SUCCINATE) [Concomitant]
     Indication: ANAPHYLAXIS PROPHYLAXIS
  12. HUMANSERUM [Concomitant]
     Indication: SUPPORTIVE CARE
     Dosage: UNK
     Route: 065
     Dates: start: 20090603, end: 20090603
  13. HUMANSERUM [Concomitant]
     Dosage: UNK
     Route: 065
     Dates: start: 20090812, end: 20090812
  14. FUROSEMIDE [Concomitant]
     Indication: SUPPORTIVE CARE
     Dosage: UNK
     Route: 065
     Dates: start: 20090621, end: 20100101
  15. SCOPOLAMINE [Concomitant]
     Indication: SUPPORTIVE CARE
     Dosage: UNK
     Route: 065
     Dates: start: 20090702, end: 20101218
  16. FLURBIPROFEN AXETIL [Concomitant]
     Indication: SUPPORTIVE CARE
     Dosage: UNK
     Route: 065
     Dates: start: 20090622, end: 20101230
  17. VORICONAZOLE [Concomitant]
     Indication: SYSTEMIC MYCOSIS
     Dosage: UNK
     Route: 065
     Dates: end: 20090805
  18. VORICONAZOLE [Concomitant]
     Dosage: UNK
     Route: 065
     Dates: start: 20090822, end: 20090922
  19. VORICONAZOLE [Concomitant]
     Dosage: UNK
     Route: 066
     Dates: start: 20091216, end: 20091218
  20. VORICONAZOLE [Concomitant]
     Dosage: UNK
     Route: 065
     Dates: start: 20090805, end: 20100106
  21. HUMAN PLASMA PROTEIN FRACTION [Concomitant]
     Indication: SUPPORTIVE CARE
     Dosage: UNK
     Route: 065
     Dates: start: 20090921, end: 20091227
  22. DOPAMINE HYDROCHLORIDE [Concomitant]
     Indication: SUPPORTIVE CARE
     Dosage: UNK
     Route: 065
     Dates: start: 20090922, end: 20091013
  23. FAMOTIDINE [Concomitant]
     Indication: SUPPORTIVE CARE
     Dosage: UNK
     Route: 065
     Dates: start: 20090923, end: 20090924
  24. FAMOTIDINE [Concomitant]
     Dosage: UNK
     Route: 065
     Dates: start: 20090702, end: 20090924
  25. OMEPRAZOLE SODIUM [Concomitant]
     Indication: SUPPORTIVE CARE
     Dosage: UNK
     Route: 065
     Dates: start: 20090923, end: 20100106
  26. CARBAZOCHROME SODIUM SULFONATE [Concomitant]
     Indication: SUPPORTIVE CARE
     Dosage: UNK
     Route: 065
     Dates: start: 20090930, end: 20091231
  27. PENTAZOCINE [Concomitant]
     Indication: SUPPORTIVE CARE
     Dosage: UNK
     Route: 065
     Dates: start: 20091001, end: 20091218
  28. SOYABEAN OIL [Concomitant]
     Indication: SUPPORTIVE CARE
     Dosage: UNK
     Route: 065
     Dates: start: 20091113, end: 20091120
  29. ALLOPURINOL [Concomitant]
     Indication: PROPHYLAXIS
     Dosage: UNK
     Route: 065
     Dates: start: 20090525, end: 20090602
  30. URSODESOXYCHOLIC ACID [Concomitant]
     Indication: PROPHYLAXIS
     Dosage: UNK
     Route: 065
     Dates: start: 20090526, end: 20090701
  31. LEVOFLOXACIN [Concomitant]
     Indication: SUPPORTIVE CARE
     Dosage: UNK
     Dates: start: 20090526, end: 20090626
  32. ACICLOVIR [Concomitant]
     Indication: PROPHYLAXIS
     Dosage: UNK
     Route: 065
     Dates: start: 20090527, end: 20090708
  33. EPINASTINE HYDROCHLORIDE [Concomitant]
     Indication: SUPPORTIVE CARE
     Dosage: UNK
     Route: 065
     Dates: start: 20090629, end: 20090731
  34. LANSOPRAZOLE [Concomitant]
     Indication: SUPPORTIVE CARE
     Dosage: UNK
     Route: 065
     Dates: start: 20090702, end: 20090908
  35. LANSOPRAZOLE [Concomitant]
     Dosage: UNK
     Route: 065
     Dates: start: 20090922, end: 20090923
  36. SULFAMETHOXAZOLE W [Concomitant]
     Indication: ANTIFUNGAL PROPHYLAXIS
     Dosage: UNK
     Route: 065
     Dates: start: 20090721, end: 20090924
  37. ALLOPURINOL [Concomitant]
     Indication: PROPHYLAXIS
     Dosage: UNK
     Route: 065
     Dates: start: 20090808, end: 20090815
  38. MIDAZOLAM [Concomitant]
     Indication: SUPPORTIVE CARE
     Dosage: UNK
     Route: 066
     Dates: start: 20091217, end: 20120106
  39. FENTANYL CITRATE [Concomitant]
     Indication: SUPPORTIVE CARE
     Dosage: UNK
     Route: 065
     Dates: start: 20091218, end: 20100106
  40. DOPAMINE HYDROCHLORIDE [Concomitant]
     Indication: SUPPORTIVE CARE
     Dosage: UNK
     Route: 066
     Dates: start: 20091231, end: 20100106
  41. DEXAMETHASONE PALMITATE [Concomitant]
     Indication: SUPPORTIVE CARE
     Dosage: UNK
     Route: 065
     Dates: start: 20100101, end: 20100101
  42. FILGRASTIM [Concomitant]
     Indication: SUPPORTIVE CARE
     Dosage: UNK
     Route: 065
     Dates: start: 20100101, end: 20100101
  43. ROCURONIUM BROMIDE [Concomitant]
     Indication: SUPPORTIVE CARE
     Dosage: UNK
     Route: 065
     Dates: start: 20100101, end: 20100101
  44. INSULIN HUMAN [Concomitant]
     Indication: SUPPORTIVE CARE
     Dosage: UNK
     Route: 065
     Dates: start: 20100101, end: 20100106

REACTIONS (20)
  - Ileus [Fatal]
  - Gastrointestinal necrosis [Fatal]
  - Granuloma [Recovered/Resolved]
  - Granuloma [Fatal]
  - Post transplant lymphoproliferative disorder [Recovered/Resolved]
  - Cytomegalovirus enterocolitis [Not Recovered/Not Resolved]
  - Pyrexia [Recovered/Resolved]
  - Peritonitis [Fatal]
  - Disseminated intravascular coagulation [Fatal]
  - Duodenitis haemorrhagic [Not Recovered/Not Resolved]
  - Cholestasis [Not Recovered/Not Resolved]
  - Febrile neutropenia [Recovered/Resolved]
  - Febrile neutropenia [Recovered/Resolved]
  - Febrile neutropenia [Recovered/Resolved]
  - Febrile neutropenia [Recovered/Resolved]
  - Acute graft versus host disease in skin [Unknown]
  - Acute graft versus host disease [Fatal]
  - Systemic mycosis [Recovered/Resolved]
  - Systemic mycosis [Recovered/Resolved]
  - Sepsis [Recovered/Resolved]
